FAERS Safety Report 19180112 (Version 2)
Quarter: 2021Q2

REPORT INFORMATION
  Report Type: Spontaneous
  Country: US (occurrence: US)
  Receive Date: 20210426
  Receipt Date: 20210430
  Transmission Date: 20210717
  Serious: Yes (Other)
  Sender: FDA-Public Use
  Company Number: US-TEVA-2021-US-1904874

PATIENT
  Sex: Female

DRUGS (1)
  1. COPAXONE [Suspect]
     Active Substance: GLATIRAMER ACETATE
     Indication: MULTIPLE SCLEROSIS
     Dosage: FORM STRENGTH: 20 MG IN 1 ML
     Route: 065
     Dates: start: 20160628

REACTIONS (4)
  - Paraesthesia [Unknown]
  - Hypoaesthesia [Unknown]
  - Multiple sclerosis relapse [Unknown]
  - Drug ineffective [Unknown]
